FAERS Safety Report 8329535-6 (Version None)
Quarter: 2012Q2

REPORT INFORMATION
  Report Type: 
  Country: None (occurrence: None)
  Receive Date: 20120502
  Receipt Date: 20120425
  Transmission Date: 20120825
  Serious: Yes (Hospitalization)
  Sender: FDA-Public Use
  Company Number: BG-ABBOTT-12P-022-0929597-00

PATIENT
  Age: 75 Year
  Sex: Female
  Weight: 80 kg

DRUGS (7)
  1. FERRIC HYDROXIDE POLYMALTOSE COMPLEX [Concomitant]
     Indication: ANAEMIA
     Route: 048
  2. FURISEMIDE [Concomitant]
     Indication: HYPERTENSION
     Route: 048
  3. DIPIRIDAMOLE [Concomitant]
     Indication: THROMBOSIS PROPHYLAXIS
     Route: 048
  4. ZEMPLAR [Suspect]
     Indication: RENAL FAILURE CHRONIC
  5. ZEMPLAR [Suspect]
     Indication: HYPERPARATHYROIDISM SECONDARY
     Route: 048
     Dates: start: 20120322
  6. BISOPROLOL FUMARATE [Concomitant]
     Indication: HYPERTENSION
     Route: 048
     Dates: start: 20100101
  7. LEVOTHYROXINE SODIUM [Concomitant]
     Indication: HYPOTHYROIDISM
     Route: 048

REACTIONS (1)
  - GASTRITIS ATROPHIC [None]
